FAERS Safety Report 5874270-7 (Version None)
Quarter: 2008Q3

REPORT INFORMATION
  Report Type: 
  Country: None (occurrence: None)
  Receive Date: 20080908
  Receipt Date: 20080827
  Transmission Date: 20090109
  Serious: Yes (Other)
  Sender: FDA-Public Use
  Company Number: US-JNJCH-2008022343

PATIENT
  Age: 32 Year
  Sex: Male
  Weight: 70.3 kg

DRUGS (1)
  1. NATURAL CITRUS LISTERINE [Suspect]
     Indication: DENTAL DISORDER PROPHYLAXIS
     Dosage: TEXT:MORE THAN A MOUTHFUL TWICE A DAY
     Route: 048
     Dates: start: 20080812, end: 20080827

REACTIONS (5)
  - ACCIDENTAL EXPOSURE [None]
  - BURNING SENSATION [None]
  - NAUSEA [None]
  - PHARMACEUTICAL PRODUCT COMPLAINT [None]
  - PYREXIA [None]
